FAERS Safety Report 4908931-0 (Version None)
Quarter: 2006Q1

REPORT INFORMATION
  Report Type: 
  Country: None (occurrence: None)
  Receive Date: 20060209
  Receipt Date: 20060202
  Transmission Date: 20060701
  Serious: Yes (Hospitalization)
  Sender: FDA-Public Use
  Company Number: 2005BI021783

PATIENT
  Sex: Female

DRUGS (2)
  1. AVONEX LIQUID [Suspect]
     Indication: MULTIPLE SCLEROSIS
     Dosage: IM
     Route: 030
     Dates: end: 20030101
  2. REBIF [Concomitant]

REACTIONS (2)
  - DIZZINESS [None]
  - SKIN DISCOLOURATION [None]
